FAERS Safety Report 8131477-6 (Version None)
Quarter: 2012Q1

REPORT INFORMATION
  Report Type: 
  Country: None (occurrence: None)
  Receive Date: 20120208
  Receipt Date: 20120116
  Transmission Date: 20120608
  Serious: Yes (Other)
  Sender: FDA-Public Use
  Company Number: 2011PROUSA00870

PATIENT

DRUGS (5)
  1. SIMVASTATIN [Concomitant]
  2. TAMSULOSIN HCL [Concomitant]
  3. ZOFRAN	/00955301/ (ONDANSETRON) [Concomitant]
  4. PROVENGE [Suspect]
     Indication: PROSTATE CANCER METASTATIC
     Dosage: 250ML, SINGLE, INTRAVENOUS
     Route: 042
     Dates: start: 20111209, end: 20111209
  5. LUPRON [Concomitant]

REACTIONS (2)
  - INFUSION SITE THROMBOSIS [None]
  - DEEP VEIN THROMBOSIS [None]
